FAERS Safety Report 4539486-0 (Version None)
Quarter: 2004Q4

REPORT INFORMATION
  Report Type: 
  Country: None (occurrence: None)
  Receive Date: 20041222
  Receipt Date: 20041210
  Transmission Date: 20050328
  Serious: Yes (Congenital Anomaly)
  Sender: FDA-Public Use
  Company Number: SUSI-2004-00646

PATIENT
  Age: 33 Year
  Sex: Female

DRUGS (2)
  1. PENTASA [Suspect]
     Indication: CROHN'S DISEASE
     Dosage: 2 + 4 G, DAILY
     Dates: start: 20020201, end: 20020401
  2. PENTASA [Suspect]
     Indication: CROHN'S DISEASE
     Dosage: 2 + 4 G, DAILY
     Dates: start: 20020401

REACTIONS (7)
  - ABORTION INDUCED [None]
  - CEREBRAL VENTRICLE DILATATION [None]
  - CONGENITAL CENTRAL NERVOUS SYSTEM ANOMALY [None]
  - CONGENITAL EYELID MALFORMATION [None]
  - DRUG EXPOSURE DURING PREGNANCY [None]
  - HYPERTELORISM OF ORBIT [None]
  - PLACENTAL DISORDER [None]
